FAERS Safety Report 17815115 (Version 3)
Quarter: 2020Q2

REPORT INFORMATION
  Report Type: Spontaneous
  Country: AT (occurrence: AT)
  Receive Date: 20200522
  Receipt Date: 20200625
  Transmission Date: 20200714
  Serious: Yes (Other)
  Sender: FDA-Public Use
  Company Number: AT-ROCHE-2604475

PATIENT
  Age: 76 Year
  Sex: Female

DRUGS (10)
  1. METHOTREXATE. [Concomitant]
     Active Substance: METHOTREXATE
     Dosage: UNK
     Route: 065
  2. LENALIDOMIDE [Concomitant]
     Active Substance: LENALIDOMIDE
     Indication: OCULAR LYMPHOMA
     Dosage: 15 MG ON DAYS 121 EVERY 28 DAYS
     Route: 065
  3. METHOTREXATE. [Concomitant]
     Active Substance: METHOTREXATE
     Dosage: FIRST LINE THERAPY, 8 CYCLES
     Route: 065
  4. POMALIDOMIDE [Suspect]
     Active Substance: POMALIDOMIDE
     Indication: LYMPHOMA
     Dosage: 4MG D1-21, Q28
     Route: 048
  5. CYTARABINE. [Suspect]
     Active Substance: CYTARABINE
     Indication: LYMPHOMA
     Dosage: BIWEEKLY
     Route: 037
  6. RITUXIMAB. [Suspect]
     Active Substance: RITUXIMAB
     Indication: LYMPHOMA
     Dosage: Q4W?FIRST LINE THERAPY, 8 CYCLES
     Route: 058
  7. METHOTREXATE. [Concomitant]
     Active Substance: METHOTREXATE
     Indication: OCULAR LYMPHOMA
     Route: 065
  8. TEMOZOLOMIDE. [Suspect]
     Active Substance: TEMOZOLOMIDE
     Indication: LYMPHOMA
     Dosage: (150 MG/M2) D1-5, Q28
     Route: 048
  9. DEXAMETHASONE. [Suspect]
     Active Substance: DEXAMETHASONE
     Indication: LYMPHOMA
     Route: 048
  10. OFATUMUMAB [Concomitant]
     Active Substance: OFATUMUMAB
     Indication: OCULAR LYMPHOMA
     Dosage: THIRD-LINE SYSTEMIC THERAPY, 4 CYCLES
     Route: 065

REACTIONS (9)
  - Adrenal insufficiency [Recovered/Resolved]
  - Off label use [Unknown]
  - Pneumonia [Recovered/Resolved]
  - Neurotoxicity [Recovered/Resolved]
  - Disease recurrence [Recovering/Resolving]
  - Ocular lymphoma [Recovering/Resolving]
  - Product use issue [Unknown]
  - Product use in unapproved indication [Unknown]
  - Hypogammaglobulinaemia [Recovered/Resolved]
